FAERS Safety Report 10331188 (Version 1)
Quarter: 2014Q3

REPORT INFORMATION
  Report Type: Spontaneous
  Country: US (occurrence: None)
  Receive Date: 20140718
  Receipt Date: 20140718
  Transmission Date: 20150326
  Serious: Yes (Congenital Anomaly, Other)
  Sender: FDA-Public Use
  Company Number: SYM-2014-23213

PATIENT
  Sex: Female
  Weight: 2.32 kg

DRUGS (1)
  1. WELLBUTRIN XL [Suspect]
     Active Substance: BUPROPION HYDROCHLORIDE
     Indication: DEPRESSION
     Route: 062
     Dates: start: 201210

REACTIONS (2)
  - Exposure during pregnancy [None]
  - Fallot^s tetralogy [None]
